FAERS Safety Report 25993069 (Version 1)
Quarter: 2025Q4

REPORT INFORMATION
  Report Type: Spontaneous
  Country: CN (occurrence: CN)
  Receive Date: 20251103
  Receipt Date: 20251103
  Transmission Date: 20260118
  Serious: Yes (Hospitalization, Other)
  Sender: BRISTOL-MYERS SQUIBB COMPANY
  Company Number: CN-MLMSERVICE-20251022-PI685430-00249-1

PATIENT
  Age: 51 Year
  Sex: Male

DRUGS (8)
  1. PACLITAXEL [Suspect]
     Active Substance: PACLITAXEL
     Indication: Adenocarcinoma gastric stage IV
     Route: 042
     Dates: start: 20220216, end: 20220626
  2. PACLITAXEL [Suspect]
     Active Substance: PACLITAXEL
     Indication: Metastases to liver
  3. OXALIPLATIN [Suspect]
     Active Substance: OXALIPLATIN
     Indication: Adenocarcinoma gastric stage IV
     Dates: start: 20220503, end: 20220626
  4. OXALIPLATIN [Suspect]
     Active Substance: OXALIPLATIN
     Indication: Metastases to liver
     Route: 042
     Dates: start: 20220216
  5. TS-1 [Suspect]
     Active Substance: GIMERACIL\OTERACIL POTASSIUM\TEGAFUR
     Indication: Adenocarcinoma gastric stage IV
     Route: 048
     Dates: start: 20220216, end: 20220626
  6. TS-1 [Suspect]
     Active Substance: GIMERACIL\OTERACIL POTASSIUM\TEGAFUR
     Indication: Metastases to liver
  7. SINTILIMAB [Suspect]
     Active Substance: SINTILIMAB
     Indication: Adenocarcinoma gastric stage IV
     Route: 042
     Dates: start: 20220216, end: 20220626
  8. SINTILIMAB [Suspect]
     Active Substance: SINTILIMAB
     Indication: Metastases to liver

REACTIONS (2)
  - Haematotoxicity [Recovered/Resolved]
  - Off label use [Unknown]

NARRATIVE: CASE EVENT DATE: 20220428
